FAERS Safety Report 14892209 (Version 1)
Quarter: 2018Q2

REPORT INFORMATION
  Report Type: Spontaneous
  Country: US (occurrence: US)
  Receive Date: 20180514
  Receipt Date: 20180514
  Transmission Date: 20180711
  Serious: No
  Sender: FDA-Public Use
  Company Number: US-UNITED THERAPEUTICS-UNT-2017-016301

PATIENT
  Sex: Male
  Weight: 29.48 kg

DRUGS (4)
  1. LETAIRIS [Concomitant]
     Active Substance: AMBRISENTAN
     Indication: PRODUCT USED FOR UNKNOWN INDICATION
     Route: 065
  2. SILDENAFIL CITRATE. [Concomitant]
     Active Substance: SILDENAFIL CITRATE
     Indication: PRODUCT USED FOR UNKNOWN INDICATION
     Route: 065
  3. REMODULIN [Suspect]
     Active Substance: TREPROSTINIL
     Indication: PULMONARY ARTERIAL HYPERTENSION
     Dosage: 0.0113 ?G/KG, CONTINUING
     Route: 058
     Dates: start: 20170427
  4. REMODULIN [Suspect]
     Active Substance: TREPROSTINIL
     Indication: PULMONARY HYPERTENSION

REACTIONS (6)
  - Infusion site erythema [Unknown]
  - Dermatitis contact [Unknown]
  - Infusion site inflammation [Unknown]
  - Infusion site rash [Unknown]
  - Infusion site pain [Not Recovered/Not Resolved]
  - Infusion site discharge [Unknown]

NARRATIVE: CASE EVENT DATE: 2017
